FAERS Safety Report 24979020 (Version 1)
Quarter: 2025Q1

REPORT INFORMATION
  Report Type: Spontaneous
  Country: US (occurrence: None)
  Receive Date: 20250218
  Receipt Date: 20250218
  Transmission Date: 20250408
  Serious: No
  Sender: ALEXION PHARMACEUTICALS
  Company Number: US-AstraZeneca-2008UW15792

PATIENT
  Age: 65 Year
  Weight: 95.3 kg

DRUGS (2)
  1. NEXIUM [Suspect]
     Active Substance: ESOMEPRAZOLE MAGNESIUM
  2. CARDURA [Concomitant]
     Active Substance: DOXAZOSIN MESYLATE

REACTIONS (4)
  - Abdominal pain upper [Unknown]
  - Headache [Unknown]
  - Pruritus [Unknown]
  - Hypoacusis [Unknown]
